FAERS Safety Report 9275555 (Version 3)
Quarter: 2013Q2

REPORT INFORMATION
  Report Type: Spontaneous
  Country: DE (occurrence: DE)
  Receive Date: 20130507
  Receipt Date: 20130520
  Transmission Date: 20140414
  Serious: Yes (Hospitalization)
  Sender: FDA-Public Use
  Company Number: DE-TEVA-402797ISR

PATIENT
  Age: 59 Year
  Sex: Female
  Weight: 69 kg

DRUGS (3)
  1. PACLITAXEL [Suspect]
     Indication: OVARIAN CANCER
     Dosage: LAST DOSE OF ADMINISTERED BEFORE ONSET OF SAE : 03-APR-2013 (300 MG, 175 MG/M2)
     Route: 042
     Dates: start: 20130220
  2. CARBOPLATIN [Suspect]
     Indication: OVARIAN CANCER
     Dosage: LAST DOSE OF ADMINISTERED BEFORE ONSET OF SAE : 03-APR-2013 (747 MG, AUC 5)
     Route: 042
     Dates: start: 20130220
  3. BEVACIZUMAB [Suspect]
     Indication: OVARIAN CANCER
     Dosage: LAST DOSE OF ADMINISTERED BEFORE ONSET OF SAE : 03-APR-2013 (990 MG, 15 MG/M2)
     Route: 042
     Dates: start: 20130313

REACTIONS (1)
  - Post procedural fistula [Recovered/Resolved]
